FAERS Safety Report 13290745 (Version 3)
Quarter: 2017Q2

REPORT INFORMATION
  Report Type: Spontaneous
  Country: JP (occurrence: JP)
  Receive Date: 20170302
  Receipt Date: 20170519
  Transmission Date: 20170830
  Serious: Yes (Hospitalization, Other)
  Sender: FDA-Public Use
  Company Number: JP-009507513-1702JPN001151J

PATIENT
  Age: 42 Year
  Sex: Female
  Weight: 62 kg

DRUGS (7)
  1. TRANSAMIN [Suspect]
     Active Substance: TRANEXAMIC ACID
     Indication: PHARYNGITIS
     Dosage: 500 MG, TID
     Route: 048
     Dates: start: 20170118, end: 20170125
  2. IBUPROFEN. [Concomitant]
     Active Substance: IBUPROFEN
     Dosage: UNK
     Route: 065
  3. MUCODYNE [Suspect]
     Active Substance: CARBOCYSTEINE
     Indication: PHARYNGITIS
     Dosage: 500 MG, TID
     Route: 048
     Dates: start: 20170118, end: 20170125
  4. MUCODYNE [Suspect]
     Active Substance: CARBOCYSTEINE
     Dosage: 500 MG, TID
     Route: 048
     Dates: start: 20170127, end: 20170128
  5. DESALEX TABLETS 5MG [Suspect]
     Active Substance: DESLORATADINE
     Indication: HYPERSENSITIVITY
     Dosage: 5 MG, QD
     Route: 048
     Dates: start: 20170127, end: 20170128
  6. HUSTAZOL [Concomitant]
     Active Substance: CLOPERASTINE
     Indication: PHARYNGITIS
     Dosage: 20 MG, TID
     Route: 048
     Dates: start: 20170118, end: 20170125
  7. HUSTAZOL [Concomitant]
     Active Substance: CLOPERASTINE
     Dosage: 20 MG, TID
     Route: 048
     Dates: start: 20170127, end: 20170128

REACTIONS (2)
  - Drug eruption [Recovered/Resolved]
  - Toxic skin eruption [Recovered/Resolved]

NARRATIVE: CASE EVENT DATE: 20170129
